FAERS Safety Report 9240252 (Version 3)
Quarter: 2013Q2

REPORT INFORMATION
  Report Type: Spontaneous
  Country: US (occurrence: None)
  Receive Date: 20130417
  Receipt Date: 20130502
  Transmission Date: 20140414
  Serious: Yes (Other)
  Sender: FDA-Public Use
  Company Number: AUR-APL-2013-03126

PATIENT
  Age: 82 Year
  Sex: Female

DRUGS (2)
  1. CIPROFLOXACIN [Suspect]
     Indication: URINARY TRACT INFECTION
  2. AMOXICILLIN+CLAVULANIC ACID [Suspect]
     Indication: URINARY TRACT INFECTION

REACTIONS (2)
  - Escherichia infection [None]
  - Drug resistance [None]
